FAERS Safety Report 8776036 (Version 1)
Quarter: 2012Q4

REPORT INFORMATION
  Report Type: 
  Country: FR (occurrence: FR)
  Receive Date: 20120910
  Receipt Date: 20120910
  Transmission Date: 20130627
  Serious: Yes (Other)
  Sender: FDA-Public Use
  Company Number: FR-ABBOTT-12P-056-0977200-00

PATIENT
  Age: 32 Year
  Sex: Female

DRUGS (3)
  1. DEPAKINE CHRONO [Suspect]
     Indication: EPILEPSY
     Route: 048
     Dates: start: 20101230, end: 20110916
  2. PROZAC [Suspect]
     Indication: POSTPARTUM DEPRESSION
     Dates: start: 20110130, end: 20110916
  3. EFFEXOR [Suspect]
     Indication: POSTPARTUM DEPRESSION
     Dates: start: 20101230, end: 20110130

REACTIONS (3)
  - Streptococcal infection [Unknown]
  - Amenorrhoea [Unknown]
  - Uterine contractions abnormal [Unknown]
